FAERS Safety Report 8396638-X (Version None)
Quarter: 2012Q2

REPORT INFORMATION
  Report Type: 
  Country: None (occurrence: None)
  Receive Date: 20120530
  Receipt Date: 20120515
  Transmission Date: 20120825
  Serious: No
  Sender: FDA-Public Use
  Company Number: US-ASTRAZENECA-2012SE29700

PATIENT
  Age: 49 Year
  Sex: Female

DRUGS (1)
  1. ZOMIG [Suspect]
     Route: 048

REACTIONS (5)
  - PAIN [None]
  - SEDATION [None]
  - INTENTIONAL DRUG MISUSE [None]
  - MIGRAINE [None]
  - VOMITING [None]
